FAERS Safety Report 5546072-2 (Version None)
Quarter: 2007Q4

REPORT INFORMATION
  Report Type: 
  Country: None (occurrence: None)
  Receive Date: 20071211
  Receipt Date: 20070921
  Transmission Date: 20080405
  Serious: No
  Sender: FDA-Public Use
  Company Number: US-BRISTOL-MYERS SQUIBB COMPANY-13916390

PATIENT
  Age: 56 Year
  Sex: Female

DRUGS (10)
  1. EMSAM [Suspect]
     Indication: DEPRESSION
     Dosage: DOSE INCREASED TO EMSAM9MG/24HR.NDC39506-044-30,LOT#6P0025,ED 03/2008. 9 MG ONE PER DAY TRANSDERMAL
     Route: 062
  2. NIFEDIPINE [Concomitant]
  3. CELEBREX [Concomitant]
  4. AMBIEN [Concomitant]
  5. LOVASTATIN [Concomitant]
  6. PREVACID [Concomitant]
  7. ATENOLOL [Concomitant]
  8. GABAPENTIN [Concomitant]
  9. OXYCODONE HCL [Concomitant]
  10. INSULIN [Concomitant]

REACTIONS (10)
  - CHEST DISCOMFORT [None]
  - GAIT DISTURBANCE [None]
  - HYPOAESTHESIA [None]
  - MUSCULOSKELETAL STIFFNESS [None]
  - NAUSEA [None]
  - OEDEMA PERIPHERAL [None]
  - PALPITATIONS [None]
  - PARAESTHESIA [None]
  - STOMACH DISCOMFORT [None]
  - VOMITING [None]
